FAERS Safety Report 4323315-4 (Version None)
Quarter: 2004Q1

REPORT INFORMATION
  Report Type: 
  Country: None (occurrence: None)
  Receive Date: 20040323
  Receipt Date: 20031203
  Transmission Date: 20041129
  Serious: No
  Sender: FDA-Public Use
  Company Number: M03-341-179

PATIENT
  Age: 47 Year
  Sex: Male

DRUGS (4)
  1. VELCADE [Suspect]
     Indication: MULTIPLE MYELOMA
     Dosage: 1.3 MG/M2: INTRAVENOUS BOLUS
     Route: 040
     Dates: start: 20030707, end: 20031103
  2. DEXAMETHASONE [Concomitant]
  3. WARFARIN SODIUM [Concomitant]
  4. ZOMETA [Concomitant]

REACTIONS (2)
  - CRANIAL NEUROPATHY [None]
  - DIPLOPIA [None]
